FAERS Safety Report 6401654-0 (Version None)
Quarter: 2009Q4

REPORT INFORMATION
  Report Type: 
  Country: None (occurrence: None)
  Receive Date: 20091009
  Receipt Date: 20091009
  Transmission Date: 20100525
  Serious: Yes (Other)
  Sender: FDA-Public Use
  Company Number: None

PATIENT
  Sex: Female
  Weight: 58.9676 kg

DRUGS (1)
  1. EXELON [Suspect]
     Indication: MEMORY IMPAIRMENT
     Dosage: 1.5  1 PILL
     Dates: start: 20091007, end: 20091007

REACTIONS (3)
  - DYSPEPSIA [None]
  - NAUSEA [None]
  - VOMITING [None]
